FAERS Safety Report 4553284-3 (Version None)
Quarter: 2005Q1

REPORT INFORMATION
  Report Type: 
  Country: None (occurrence: None)
  Receive Date: 20050113
  Receipt Date: 20041231
  Transmission Date: 20050727
  Serious: Yes (Life-Threatening)
  Sender: FDA-Public Use
  Company Number: 05H-161-0285443-00

PATIENT
  Age: 8 Year
  Sex: 0

DRUGS (1)
  1. PENTOTHAL [Suspect]
     Dosage: INTRAVENOUS
     Route: 042

REACTIONS (2)
  - CARDIAC ARREST [None]
  - COMA [None]
